FAERS Safety Report 8161368-6 (Version None)
Quarter: 2012Q1

REPORT INFORMATION
  Report Type: 
  Country: None (occurrence: None)
  Receive Date: 20120224
  Receipt Date: 20120215
  Transmission Date: 20120608
  Serious: Yes (Other)
  Sender: FDA-Public Use
  Company Number: JP-JNJFOC-20110907347

PATIENT
  Sex: Female

DRUGS (14)
  1. TRAMADOL HYDROCHLORIDE AND ACETAMINOPHEN [Suspect]
     Dosage: ONCE A DAY
     Route: 048
     Dates: start: 20110804, end: 20110818
  2. ZOLPIDEM [Concomitant]
     Indication: INSOMNIA
     Dosage: ONCE A DAY
     Route: 048
     Dates: start: 20080702
  3. METHYCOBAL [Concomitant]
     Route: 065
  4. MOTILIUM [Concomitant]
     Dosage: ONCE A DAY
     Route: 065
     Dates: start: 20110818, end: 20110921
  5. MOTILIUM [Concomitant]
     Dosage: ONCE A DAY
     Route: 065
     Dates: start: 20110818, end: 20110921
  6. MOTILIUM [Concomitant]
     Dosage: ONCE A DAY
     Route: 065
     Dates: start: 20110804, end: 20110818
  7. LYRICA [Concomitant]
     Indication: PAIN
     Dosage: ONCE A DAY
     Route: 048
     Dates: start: 20110804, end: 20110813
  8. MOHRUS TAPE [Concomitant]
     Indication: PAIN
     Route: 062
     Dates: start: 20090725
  9. TRAMADOL HYDROCHLORIDE AND ACETAMINOPHEN [Suspect]
     Indication: PAIN
     Dosage: ONCE A DAY
     Route: 048
     Dates: start: 20110818, end: 20110921
  10. LOXONIN [Concomitant]
     Indication: PAIN
     Dosage: ONCE A DAY
     Route: 048
     Dates: start: 20090725
  11. PURSENNID [Concomitant]
     Route: 048
  12. MOTILIUM [Concomitant]
     Indication: PROPHYLAXIS OF NAUSEA AND VOMITING
     Dosage: ONCE A DAY
     Route: 065
     Dates: start: 20110804, end: 20110818
  13. LANSOPRAZOLE [Concomitant]
     Route: 065
  14. IRSOGLADINE MALEATE [Concomitant]
     Indication: GASTRITIS PROPHYLAXIS
     Dosage: ONCE A DAY
     Route: 048
     Dates: start: 20090725

REACTIONS (5)
  - NEUROGENIC BLADDER [None]
  - BLOOD URINE PRESENT [None]
  - DYSURIA [None]
  - POLLAKIURIA [None]
  - WHITE BLOOD CELLS URINE POSITIVE [None]
